FAERS Safety Report 9093061 (Version 2)
Quarter: 2013Q1

REPORT INFORMATION
  Report Type: Spontaneous
  Country: BR (occurrence: BR)
  Receive Date: 20130201
  Receipt Date: 20130208
  Transmission Date: 20140127
  Serious: No
  Sender: FDA-Public Use
  Company Number: BR-PFIZER INC-2013040736

PATIENT
  Age: 4 Month
  Sex: Female
  Weight: 6.7 kg

DRUGS (1)
  1. PANTOZOL [Suspect]
     Indication: VOMITING
     Dosage: 20 MG, 1/2 TABLET IN 5 ML OF WATER DAILY
     Route: 048
     Dates: start: 20130123, end: 20130123

REACTIONS (5)
  - Off label use [Recovered/Resolved]
  - Pallor [Recovered/Resolved]
  - Hyperhidrosis [Recovered/Resolved]
  - Pain [Recovered/Resolved]
  - Vertigo [Recovered/Resolved]
